FAERS Safety Report 8627440 (Version 2)
Quarter: 2012Q4

REPORT INFORMATION
  Report Type: 
  Country: JP (occurrence: JP)
  Receive Date: 20120621
  Receipt Date: 20120926
  Transmission Date: 20130627
  Serious: Yes (Hospitalization)
  Sender: FDA-Public Use
  Company Number: JP-JNJFOC-20120510880

PATIENT
  Age: 74 Year
  Sex: Female

DRUGS (7)
  1. TRAMCET [Suspect]
     Indication: PAIN
     Dosage: one tablet per one day
     Route: 048
     Dates: start: 20120424
  2. PAXIL [Concomitant]
     Indication: DEPRESSION
     Dosage: 1 per day
     Route: 048
     Dates: start: 20120424
  3. JANUVIA [Concomitant]
     Indication: DIABETES MELLITUS
     Dosage: 1 per day
     Route: 048
     Dates: start: 20120424
  4. LIPITOR [Concomitant]
     Indication: HYPERLIPIDAEMIA
     Dosage: 1 per day
     Route: 048
     Dates: start: 20120424
  5. DEPAS [Concomitant]
     Indication: AUTONOMIC NERVOUS SYSTEM IMBALANCE
     Dosage: 1 per day
     Route: 048
     Dates: start: 20120424
  6. ACTOS [Concomitant]
     Indication: DIABETES MELLITUS
     Dosage: 1 per day
     Route: 048
     Dates: start: 20120424
  7. LENDORMIN [Concomitant]
     Indication: INSOMNIA
     Dosage: 1 per day
     Route: 048
     Dates: start: 20120424

REACTIONS (4)
  - Angina pectoris [Unknown]
  - Dysuria [Unknown]
  - Albuminuria [Unknown]
  - Dysgeusia [Unknown]
